FAERS Safety Report 14066737 (Version 1)
Quarter: 2017Q4

REPORT INFORMATION
  Report Type: Spontaneous
  Country: US (occurrence: US)
  Receive Date: 20171006
  Receipt Date: 20171006
  Transmission Date: 20180321
  Serious: Yes (Other)
  Sender: FDA-Public Use
  Company Number: None

PATIENT
  Sex: Female
  Weight: 86.4 kg

DRUGS (12)
  1. LANTUS [Concomitant]
     Active Substance: INSULIN GLARGINE
  2. TRADJENTA [Concomitant]
     Active Substance: LINAGLIPTIN
  3. AFINITOR [Suspect]
     Active Substance: EVEROLIMUS
     Indication: BONE CANCER
     Route: 048
     Dates: start: 20161019
  4. METOPROLOL. [Concomitant]
     Active Substance: METOPROLOL
  5. GABAPENTIN. [Concomitant]
     Active Substance: GABAPENTIN
  6. CHLORHEXIDINE GLUCONATE. [Concomitant]
     Active Substance: CHLORHEXIDINE GLUCONATE
  7. ONDANSETRON [Concomitant]
     Active Substance: ONDANSETRON
  8. ALPRAZOLAM. [Concomitant]
     Active Substance: ALPRAZOLAM
  9. LIPITOR [Concomitant]
     Active Substance: ATORVASTATIN CALCIUM
  10. METFORMIN [Concomitant]
     Active Substance: METFORMIN HYDROCHLORIDE
  11. AFINITOR [Suspect]
     Active Substance: EVEROLIMUS
     Indication: BREAST CANCER
     Route: 048
     Dates: start: 20161019
  12. TAMOXIFEN CITRATE. [Concomitant]
     Active Substance: TAMOXIFEN CITRATE

REACTIONS (1)
  - Insomnia [None]
